FAERS Safety Report 12912777 (Version 1)
Quarter: 2016Q4

REPORT INFORMATION
  Report Type: Report from Study
  Country: GB (occurrence: GB)
  Receive Date: 20161104
  Receipt Date: 20161104
  Transmission Date: 20170207
  Serious: Yes (Hospitalization)
  Sender: FDA-Public Use
  Company Number: GB-CELGENEUS-GBR-2016107147

PATIENT
  Age: 72 Year
  Sex: Male
  Weight: 71.3 kg

DRUGS (8)
  1. ABRAXANE [Suspect]
     Active Substance: PACLITAXEL
     Indication: PANCREATIC CARCINOMA METASTATIC
     Dosage: 200 MILLIGRAM
     Route: 041
     Dates: start: 20160707, end: 20160902
  2. NELFINAVIR [Suspect]
     Active Substance: NELFINAVIR
     Indication: PANCREATIC CARCINOMA METASTATIC
     Route: 048
     Dates: start: 20160921, end: 20161024
  3. BIPHASIL [Concomitant]
     Indication: DIABETES MELLITUS
     Route: 058
     Dates: start: 20161024
  4. METOCLOPRAMIDE. [Concomitant]
     Active Substance: METOCLOPRAMIDE
     Indication: NAUSEA
     Route: 048
     Dates: start: 20161024
  5. CAPECITABINE. [Suspect]
     Active Substance: CAPECITABINE
     Indication: PANCREATIC CARCINOMA METASTATIC
     Route: 048
     Dates: start: 20160928, end: 20161024
  6. RANITIDINE. [Concomitant]
     Active Substance: RANITIDINE
     Indication: GASTRIC PH INCREASED
     Route: 048
     Dates: start: 20161024
  7. GEMCITABINE [Suspect]
     Active Substance: GEMCITABINE\GEMCITABINE HYDROCHLORIDE
     Indication: PANCREATIC CARCINOMA METASTATIC
     Route: 041
     Dates: start: 20160707, end: 20160902
  8. METOCLOPRAMIDE. [Concomitant]
     Active Substance: METOCLOPRAMIDE
     Indication: VOMITING

REACTIONS (2)
  - Hypophagia [Recovering/Resolving]
  - Fatigue [Recovering/Resolving]

NARRATIVE: CASE EVENT DATE: 20161024
